FAERS Safety Report 14037304 (Version 2)
Quarter: 2017Q4

REPORT INFORMATION
  Report Type: Spontaneous
  Country: RO (occurrence: RO)
  Receive Date: 20171004
  Receipt Date: 20171013
  Transmission Date: 20180321
  Serious: Yes (Other)
  Sender: FDA-Public Use
  Company Number: RO-SUN PHARMACEUTICAL INDUSTRIES LTD-2017RR-151154

PATIENT
  Age: 50 Year
  Sex: Male

DRUGS (1)
  1. FLURBIPROFEN. [Suspect]
     Active Substance: FLURBIPROFEN
     Indication: DYSPHAGIA
     Dosage: UNK
     Route: 065

REACTIONS (4)
  - Cardio-respiratory arrest [Unknown]
  - Anaphylactic reaction [Unknown]
  - Shock [Unknown]
  - Angioedema [Unknown]
